FAERS Safety Report 19907070 (Version 2)
Quarter: 2021Q4

REPORT INFORMATION
  Report Type: Spontaneous
  Country: US (occurrence: US)
  Receive Date: 20210930
  Receipt Date: 20211007
  Transmission Date: 20220303
  Serious: Yes (Other)
  Sender: FDA-Public Use
  Company Number: US-GLAXOSMITHKLINE-USCH2021GSK066673

PATIENT
  Sex: Female
  Weight: 90.7 kg

DRUGS (57)
  1. PREVACID 24 HR [Suspect]
     Active Substance: LANSOPRAZOLE
     Indication: Gastrooesophageal reflux disease
     Dosage: UNKNOWN, UNKNOWN
     Route: 048
     Dates: start: 20090518, end: 2014
  2. PREVACID 24 HR [Suspect]
     Active Substance: LANSOPRAZOLE
     Indication: Flatulence
  3. PREVACID 24 HR [Suspect]
     Active Substance: LANSOPRAZOLE
     Indication: Dyspepsia
  4. PREVACID 24 HR [Suspect]
     Active Substance: LANSOPRAZOLE
     Indication: Gastrooesophageal reflux disease
  5. PREVACID 24 HR [Suspect]
     Active Substance: LANSOPRAZOLE
     Indication: Flatulence
  6. PREVACID 24 HR [Suspect]
     Active Substance: LANSOPRAZOLE
     Indication: Dyspepsia
  7. PREVACID [Suspect]
     Active Substance: LANSOPRAZOLE
     Indication: Gastrooesophageal reflux disease
     Dosage: UNK
     Route: 048
     Dates: start: 2000, end: 2018
  8. PREVACID [Suspect]
     Active Substance: LANSOPRAZOLE
     Indication: Gastrooesophageal reflux disease
  9. PREVACID [Suspect]
     Active Substance: LANSOPRAZOLE
     Indication: Flatulence
  10. PREVACID [Suspect]
     Active Substance: LANSOPRAZOLE
     Indication: Flatulence
  11. PREVACID [Suspect]
     Active Substance: LANSOPRAZOLE
     Indication: Dyspepsia
  12. PREVACID [Suspect]
     Active Substance: LANSOPRAZOLE
     Indication: Dyspepsia
  13. NEXIUM 24HR [Suspect]
     Active Substance: ESOMEPRAZOLE MAGNESIUM
     Indication: Gastrooesophageal reflux disease
     Dosage: UNK
     Route: 048
     Dates: start: 2014, end: 2015
  14. NEXIUM 24HR [Suspect]
     Active Substance: ESOMEPRAZOLE MAGNESIUM
     Indication: Flatulence
  15. NEXIUM 24HR [Suspect]
     Active Substance: ESOMEPRAZOLE MAGNESIUM
     Indication: Dyspepsia
  16. NEXIUM 24HR [Suspect]
     Active Substance: ESOMEPRAZOLE MAGNESIUM
     Indication: Gastrooesophageal reflux disease
  17. NEXIUM 24HR [Suspect]
     Active Substance: ESOMEPRAZOLE MAGNESIUM
     Indication: Flatulence
  18. NEXIUM 24HR [Suspect]
     Active Substance: ESOMEPRAZOLE MAGNESIUM
     Indication: Dyspepsia
  19. NEXIUM [Suspect]
     Active Substance: ESOMEPRAZOLE MAGNESIUM
     Indication: Gastrooesophageal reflux disease
     Dosage: UNKNOWN
     Route: 048
     Dates: start: 2000, end: 2018
  20. NEXIUM [Suspect]
     Active Substance: ESOMEPRAZOLE MAGNESIUM
     Indication: Flatulence
  21. NEXIUM [Suspect]
     Active Substance: ESOMEPRAZOLE MAGNESIUM
     Indication: Dyspepsia
  22. PRILOSEC [Suspect]
     Active Substance: OMEPRAZOLE MAGNESIUM
     Indication: Gastrooesophageal reflux disease
     Dosage: 20 MG, QD
     Route: 048
     Dates: start: 2000, end: 2018
  23. PRILOSEC [Suspect]
     Active Substance: OMEPRAZOLE MAGNESIUM
     Indication: Flatulence
  24. PRILOSEC [Suspect]
     Active Substance: OMEPRAZOLE MAGNESIUM
     Indication: Dyspepsia
  25. OMEPRAZOLE SODIUM [Suspect]
     Active Substance: OMEPRAZOLE SODIUM
     Indication: Gastrooesophageal reflux disease
     Dosage: UNK
     Route: 048
     Dates: start: 2000, end: 2018
  26. OMEPRAZOLE SODIUM [Suspect]
     Active Substance: OMEPRAZOLE SODIUM
     Indication: Flatulence
  27. OMEPRAZOLE SODIUM [Suspect]
     Active Substance: OMEPRAZOLE SODIUM
     Indication: Dyspepsia
  28. OMEPRAZOLE SODIUM [Suspect]
     Active Substance: OMEPRAZOLE SODIUM
     Indication: Gastrooesophageal reflux disease
  29. OMEPRAZOLE SODIUM [Suspect]
     Active Substance: OMEPRAZOLE SODIUM
     Indication: Flatulence
  30. OMEPRAZOLE SODIUM [Suspect]
     Active Substance: OMEPRAZOLE SODIUM
     Indication: Dyspepsia
  31. AMOXICILLIN [Concomitant]
     Active Substance: AMOXICILLIN
     Indication: Infection
     Dosage: UNK
     Route: 065
     Dates: start: 2009
  32. AMOXICILLIN [Concomitant]
     Active Substance: AMOXICILLIN
     Dosage: UNK
     Route: 065
     Dates: start: 2011
  33. AMOXICILLIN [Concomitant]
     Active Substance: AMOXICILLIN
     Dosage: UNK
     Route: 065
     Dates: start: 2014
  34. AMOXICILLIN [Concomitant]
     Active Substance: AMOXICILLIN
     Dosage: UNK
     Route: 065
     Dates: start: 2015
  35. AMOXICILLIN [Concomitant]
     Active Substance: AMOXICILLIN
     Dosage: UNK
     Route: 065
     Dates: start: 2017
  36. LIPITOR [Concomitant]
     Active Substance: ATORVASTATIN CALCIUM
     Indication: Blood cholesterol increased
     Dosage: UNK
     Route: 065
     Dates: start: 2005
  37. NAPROXEN [Concomitant]
     Active Substance: NAPROXEN
     Indication: Pain
     Dosage: UNK
     Route: 065
     Dates: start: 2006
  38. NAPROXEN [Concomitant]
     Active Substance: NAPROXEN
     Dosage: UNK
     Route: 065
     Dates: start: 2016
  39. LISINOPRIL [Concomitant]
     Active Substance: LISINOPRIL
     Indication: Hypertension
     Dosage: UNK
     Route: 065
     Dates: start: 2009, end: 2016
  40. HYDROCHLOROTHIAZIDE [Concomitant]
     Active Substance: HYDROCHLOROTHIAZIDE
     Indication: Oedema
     Dosage: UNK
     Route: 065
     Dates: start: 2010, end: 2015
  41. DOXYCYCLINE [Concomitant]
     Active Substance: DOXYCYCLINE
     Indication: Infection
     Dosage: UNK
     Route: 065
     Dates: start: 2010
  42. AZITHROMYCIN ANHYDROUS [Concomitant]
     Active Substance: AZITHROMYCIN ANHYDROUS
     Indication: Infection
     Dosage: UNK
     Route: 065
     Dates: start: 2017
  43. ALLOPURINOL [Concomitant]
     Active Substance: ALLOPURINOL
     Indication: Nephrolithiasis
     Dosage: UNK
     Route: 065
     Dates: start: 2018
  44. TRAMADOL [Concomitant]
     Active Substance: TRAMADOL
     Indication: Pain
     Dosage: UNK
     Route: 065
     Dates: start: 2019
  45. IBUPROFEN [Concomitant]
     Active Substance: IBUPROFEN
     Indication: Pain
     Dosage: UNK
     Route: 065
  46. IBUPROFEN [Concomitant]
     Active Substance: IBUPROFEN
     Dosage: UNK
  47. BENADRYL [Concomitant]
     Active Substance: DIPHENHYDRAMINE HYDROCHLORIDE
     Indication: Multiple allergies
     Dosage: UNK
     Route: 065
  48. CIMETIDINE [Concomitant]
     Active Substance: CIMETIDINE
     Indication: Product used for unknown indication
     Dosage: UNK
     Route: 065
     Dates: start: 2014, end: 2019
  49. PEPCID [Concomitant]
     Active Substance: FAMOTIDINE
     Indication: Product used for unknown indication
     Dosage: UNK
     Route: 065
     Dates: start: 2014, end: 2019
  50. PEPCID AC [Concomitant]
     Active Substance: FAMOTIDINE
     Indication: Product used for unknown indication
     Dosage: UNK
     Route: 065
     Dates: start: 2014, end: 2019
  51. ZANTAC [Concomitant]
     Active Substance: RANITIDINE HYDROCHLORIDE
     Indication: Product used for unknown indication
     Dosage: UNK
     Route: 065
     Dates: start: 2014, end: 2019
  52. RANITIDINE [Concomitant]
     Active Substance: RANITIDINE
     Indication: Product used for unknown indication
     Dosage: UNK
     Route: 065
     Dates: start: 2014, end: 2019
  53. FAMOTIDINE [Concomitant]
     Active Substance: FAMOTIDINE
     Indication: Product used for unknown indication
     Dosage: UNK
     Route: 065
     Dates: start: 2014, end: 2019
  54. MYLANTA                            /01226301/ [Concomitant]
     Indication: Product used for unknown indication
     Dosage: UNK
     Route: 065
  55. BENADRYL [Concomitant]
     Active Substance: DIPHENHYDRAMINE HYDROCHLORIDE
     Indication: Multiple allergies
     Dosage: UNK
  56. ALUMINUM HYDROXIDE\MAGNESIUM CARBONATE [Concomitant]
     Active Substance: ALUMINUM HYDROXIDE\MAGNESIUM CARBONATE
     Indication: Product used for unknown indication
     Dosage: UNK
     Dates: start: 2014, end: 2019
  57. MYLANTA [Concomitant]
     Active Substance: ALUMINUM HYDROXIDE\DIMETHICONE\MAGNESIUM HYDROXIDE
     Indication: Product used for unknown indication
     Dosage: UNK

REACTIONS (2)
  - Chronic kidney disease [Not Recovered/Not Resolved]
  - Nephrolithiasis [Unknown]

NARRATIVE: CASE EVENT DATE: 20130101
